FAERS Safety Report 6831773-6 (Version None)
Quarter: 2010Q3

REPORT INFORMATION
  Report Type: 
  Country: None (occurrence: None)
  Receive Date: 20100712
  Receipt Date: 20100701
  Transmission Date: 20110219
  Serious: Yes (Hospitalization)
  Sender: FDA-Public Use
  Company Number: US-JNJFOC-20100506489

PATIENT
  Sex: Female
  Weight: 76 kg

DRUGS (6)
  1. GOLIMUMAB [Suspect]
     Route: 058
  2. GOLIMUMAB [Suspect]
     Indication: RHEUMATOID ARTHRITIS
     Route: 058
  3. DARVOCET-N 100 [Concomitant]
     Route: 048
  4. METHOTREXATE [Concomitant]
     Route: 048
  5. RELAFEN [Concomitant]
     Route: 048
  6. FOLIC ACID [Concomitant]
     Route: 048

REACTIONS (1)
  - STAPHYLOCOCCAL ABSCESS [None]
